FAERS Safety Report 7831708-3 (Version None)
Quarter: 2011Q4

REPORT INFORMATION
  Report Type: 
  Country: None (occurrence: None)
  Receive Date: 20111021
  Receipt Date: 20111017
  Transmission Date: 20120403
  Serious: Yes (Other)
  Sender: FDA-Public Use
  Company Number: US-SANOFI-AVENTIS-2011SA068676

PATIENT
  Age: 68 Year
  Sex: Female

DRUGS (6)
  1. METFORMIN HCL [Suspect]
     Route: 048
     Dates: end: 20110611
  2. HMG COA REDUCTASE INHIBITORS [Concomitant]
  3. BETA BLOCKING AGENTS [Concomitant]
  4. LANTUS [Suspect]
     Dosage: DOSE:30 UNIT(S)
     Route: 058
  5. ORAL ANTIDIABETICS [Suspect]
     Route: 065
     Dates: start: 20110302
  6. PLATELETS [Concomitant]

REACTIONS (2)
  - HYPOGLYCAEMIA [None]
  - GASTROENTERITIS [None]
